FAERS Safety Report 8808967 (Version 1)
Quarter: 2012Q4

REPORT INFORMATION
  Report Type: 
  Country: US (occurrence: US)
  Receive Date: 20120926
  Receipt Date: 20120926
  Transmission Date: 20130627
  Serious: Yes (Hospitalization)
  Sender: FDA-Public Use
  Company Number: US-PFIZER INC-2012235106

PATIENT
  Age: 73 Year
  Sex: Male
  Weight: 76.64 kg

DRUGS (11)
  1. LIPITOR [Suspect]
     Indication: BLOOD CHOLESTEROL INCREASED
     Dosage: 80 mg, daily at bedtime
  2. CARVEDILOL [Concomitant]
     Indication: HYPERTENSION
     Dosage: 12.5 mg, daily
  3. PLAVIX [Concomitant]
     Indication: ANTICOAGULANT THERAPY
     Dosage: 75 mg, daily
  4. LASIX [Concomitant]
     Indication: DIURETIC THERAPY
     Dosage: 40 mg, daily
  5. GABAPENTIN [Concomitant]
     Indication: PAIN IN EXTREMITY
     Dosage: 300 mg, 4x/day
  6. GABAPENTIN [Concomitant]
     Indication: OEDEMA PERIPHERAL
  7. GLIMEPIRIDE [Concomitant]
     Indication: DIABETES MELLITUS
     Dosage: 4 mg, 2x/day
  8. LORTAB [Concomitant]
     Dosage: [hydrocodone bitartrate 7.5 mg] / [acetaminophen 500 mg],as needed
  9. ISOSORBIDE MONONITRATE [Concomitant]
     Dosage: 120 mg, daily
  10. LOSARTAN [Concomitant]
     Dosage: 50 mg, daily
  11. PANTOPRAZOLE [Concomitant]
     Dosage: 40 mg, daily

REACTIONS (1)
  - Cerebrovascular accident [Recovering/Resolving]
